FAERS Safety Report 9025986 (Version 1)
Quarter: 2012Q4

REPORT INFORMATION
  Report Type: Spontaneous
  Country: US (occurrence: None)
  Receive Date: 20121217
  Receipt Date: 20121217
  Transmission Date: 20130627
  Serious: Yes (Hospitalization)
  Sender: FDA-Public Use
  Company Number: None

PATIENT
  Age: 70 Year
  Sex: Female
  Weight: 51.71 kg

DRUGS (7)
  1. OXALIPLATIN [Suspect]
     Indication: PANCREATIC CANCER
     Dosage: 50 mg vial
  2. OXALIPLATIN [Suspect]
     Indication: PANCREATIC CANCER
     Dosage: 100 mg vial
  3. LEUCOVORIN [Suspect]
     Indication: PANCREATIC CANCER
     Dosage: 350 mg vial
  4. LEUCOVORIN [Suspect]
     Indication: PANCREATIC CANCER
     Dosage: Calcium Follnate (same drug, different form)
  5. ABRAXANE [Suspect]
  6. LORAZEPAM 0.5MG [Concomitant]
  7. NYSTATIN 1000.000 UNIT/ML [Concomitant]

REACTIONS (5)
  - Nausea [None]
  - Abdominal pain [None]
  - Diarrhoea [None]
  - White blood cell count increased [None]
  - Ascites [None]
